FAERS Safety Report 9252167 (Version 1)
Quarter: 2013Q1

REPORT INFORMATION
  Report Type: Spontaneous
  Country: US (occurrence: None)
  Receive Date: 20130305
  Receipt Date: 20130305
  Transmission Date: 20140127
  Serious: Yes (Death)
  Sender: FDA-Public Use
  Company Number: 163-21880-12090982

PATIENT
  Age: 73 Year
  Sex: Female

DRUGS (17)
  1. REVLIMID [Suspect]
     Indication: PLASMA CELL MYELOMA
     Route: 048
     Dates: start: 20120724, end: 20120726
  2. LORTAB (VICODIN) [Concomitant]
  3. XANAX (ALPRAZOLAM) [Concomitant]
  4. ZOFRAN (ONDANSETRON HYDROCHLORIDE) [Concomitant]
  5. CALCIUM (CALCIUM) [Concomitant]
  6. FERROUS SULFATE (FERROUS SULFATE) [Concomitant]
  7. RANITIDINE (RANITIDINE) [Concomitant]
  8. POTASSIUM (POTASSIUM) [Concomitant]
  9. PRADAXA (DABIGATRAN ETEXILATE MESILATE) [Concomitant]
  10. SENOKOT (SENNA FRUIT) [Concomitant]
  11. SYMBICORT (SYMBICORT TURBUHALER ^DRACO^) [Concomitant]
  12. NEBULIZER (ADRENERGICS, INHALANTS) [Concomitant]
  13. VITAMIN D (ERGOCALCIFEROL) [Concomitant]
  14. TYLENOL PM (TYLENOL PM) [Concomitant]
  15. LISINOPRIL (LISINOPRIL) [Concomitant]
  16. CARVEDILOL (CARVEDILOL) [Concomitant]
  17. AMIODARONE (AMIODARONE) [Concomitant]

REACTIONS (1)
  - Cardiac failure congestive [None]
